FAERS Safety Report 7718607-2 (Version None)
Quarter: 2011Q3

REPORT INFORMATION
  Report Type: 
  Country: None (occurrence: None)
  Receive Date: 20110830
  Receipt Date: 20110818
  Transmission Date: 20111222
  Serious: Yes (Hospitalization)
  Sender: FDA-Public Use
  Company Number: US-CELGENEUS-163-AB007-11082355

PATIENT
  Sex: Male
  Weight: 99.5 kg

DRUGS (14)
  1. COMPAZINE [Concomitant]
     Indication: NAUSEA
     Dosage: 10 MILLIGRAM
     Route: 065
  2. CYMBALTA [Concomitant]
     Indication: DEPRESSION
     Dosage: 60 MILLIGRAM
     Route: 065
     Dates: start: 20110720
  3. LUMIGAN [Concomitant]
     Indication: GLAUCOMA
     Dosage: .01 PERCENT
     Route: 047
  4. ABRAXANE [Suspect]
     Dosage: 220 MILLIGRAM
     Dates: start: 20110810
  5. GEMCITABINE [Suspect]
     Dosage: 1650 MILLIGRAM
     Route: 065
     Dates: start: 20110810
  6. XELODA [Suspect]
     Dosage: 1650 MILLIGRAM
     Route: 065
     Dates: start: 20110807, end: 20110813
  7. PROTONIX [Concomitant]
     Dosage: 40 MILLIGRAM
     Route: 065
  8. MORPHINE [Concomitant]
     Indication: PAIN MANAGEMENT
     Dosage: 30 MILLIGRAM
     Route: 065
  9. ZOFRAN [Concomitant]
     Indication: NAUSEA
     Dosage: 8 MILLIGRAM
     Route: 065
  10. ZOFRAN [Concomitant]
     Indication: VOMITING
  11. AUGMENTIN '125' [Concomitant]
     Indication: GLAUCOMA
     Dosage: 875 MILLIGRAM
     Route: 047
  12. CYMBALTA [Concomitant]
     Indication: ANXIETY DISORDER
  13. COMPAZINE [Concomitant]
     Indication: VOMITING
  14. COLACE [Concomitant]
     Indication: CONSTIPATION
     Dosage: 250 MILLIGRAM
     Route: 065
     Dates: start: 20110722

REACTIONS (4)
  - NAUSEA [None]
  - VOMITING [None]
  - DECREASED APPETITE [None]
  - ABDOMINAL DISTENSION [None]
